FAERS Safety Report 7710518-1 (Version None)
Quarter: 2011Q3

REPORT INFORMATION
  Report Type: 
  Country: None (occurrence: None)
  Receive Date: 20110825
  Receipt Date: 20110818
  Transmission Date: 20111222
  Serious: Yes (Hospitalization, Congenital Anomaly, Other)
  Sender: FDA-Public Use
  Company Number: DE-BAYER-2011-074747

PATIENT
  Sex: Female
  Weight: 2.42 kg

DRUGS (6)
  1. LEVONORGESTREL [Suspect]
     Dosage: UNK
     Route: 064
     Dates: start: 20100121, end: 20100914
  2. THYROXIN [Concomitant]
     Dosage: 175 ?G/D, UNK
     Route: 064
     Dates: start: 20100121, end: 20100921
  3. THYROXIN [Concomitant]
     Indication: HYPOTHYROIDISM
     Dosage: 175 ?G/D, UNK
     Route: 064
     Dates: start: 20100121, end: 20100921
  4. LEVONORGESTREL [Suspect]
     Indication: CONTRACEPTION
     Dosage: UNK
     Route: 064
     Dates: start: 20100121, end: 20100914
  5. FOLIC ACID [Concomitant]
     Indication: PROPHYLAXIS OF NEURAL TUBE DEFECT
     Dosage: UNK
     Route: 064
     Dates: start: 20100121, end: 20100921
  6. FOLIC ACID [Concomitant]
     Dosage: UNK
     Route: 064
     Dates: start: 20100121, end: 20100921

REACTIONS (6)
  - CONGENITAL PNEUMONIA [None]
  - VOMITING [None]
  - FEEDING DISORDER [None]
  - PREMATURE BABY [None]
  - PYLORIC STENOSIS [None]
  - BRADYCARDIA [None]
